FAERS Safety Report 20008438 (Version 1)
Quarter: 2021Q4

REPORT INFORMATION
  Report Type: Spontaneous
  Country: PT (occurrence: PT)
  Receive Date: 20211029
  Receipt Date: 20211029
  Transmission Date: 20220303
  Serious: Yes (Other)
  Sender: FDA-Public Use
  Company Number: PT-SUN PHARMACEUTICAL INDUSTRIES LTD-2021R1-315615

PATIENT
  Age: 67 Year
  Sex: Female

DRUGS (2)
  1. MORPHINE [Suspect]
     Active Substance: MORPHINE
     Indication: General anaesthesia
     Dosage: 2.5 MILLIGRAM
     Route: 037
  2. ROPIVACAINE. [Concomitant]
     Active Substance: ROPIVACAINE HYDROCHLORIDE
     Indication: General anaesthesia
     Dosage: 20 MILLIGRAM
     Route: 065

REACTIONS (5)
  - Overdose [Unknown]
  - Motor dysfunction [Recovered/Resolved]
  - Hypercapnia [Unknown]
  - CSF glucose abnormal [Unknown]
  - Somnolence [Unknown]
